FAERS Safety Report 8513354 (Version 3)
Quarter: 2013Q1

REPORT INFORMATION
  Report Type: Spontaneous
  Country: US (occurrence: US)
  Receive Date: 20120416
  Receipt Date: 20130204
  Transmission Date: 20140127
  Serious: No
  Sender: FDA-Public Use
  Company Number: US-PFIZER INC-2012090934

PATIENT
  Age: 30 Year
  Sex: Female

DRUGS (18)
  1. PROTONIX [Suspect]
     Indication: POSTOPERATIVE CARE
     Dosage: 40 MG, 1X/DAY
     Route: 048
     Dates: start: 200808, end: 20120131
  2. CYMBALTA [Concomitant]
     Indication: DEPRESSION
     Dosage: UNK
  3. NEURONTIN [Concomitant]
     Indication: NERVE INJURY
     Dosage: UNK
  4. VICODIN [Concomitant]
     Indication: INTERVERTEBRAL DISC PROTRUSION
     Dosage: UNK
  5. VICODIN [Concomitant]
     Indication: INTERVERTEBRAL DISC PROTRUSION
  6. ADDERALL [Concomitant]
     Indication: INTERVERTEBRAL DISC PROTRUSION
     Dosage: UNK
  7. ADDERALL [Concomitant]
     Indication: INTERVERTEBRAL DISC PROTRUSION
  8. KLONOPIN [Concomitant]
     Indication: INTERVERTEBRAL DISC PROTRUSION
     Dosage: UNK
  9. KLONOPIN [Concomitant]
     Indication: INTERVERTEBRAL DISC PROTRUSION
  10. TRAZODONE [Concomitant]
     Indication: INTERVERTEBRAL DISC PROTRUSION
     Dosage: UNK
  11. TRAZODONE [Concomitant]
     Indication: INTERVERTEBRAL DISC PROTRUSION
  12. FLEXERIL [Concomitant]
     Indication: INTERVERTEBRAL DISC PROTRUSION
     Dosage: UNK
  13. FLEXERIL [Concomitant]
     Indication: INTERVERTEBRAL DISC PROTRUSION
  14. FENTANYL [Concomitant]
     Indication: INTERVERTEBRAL DISC PROTRUSION
     Dosage: UNK
  15. FENTANYL [Concomitant]
     Indication: INTERVERTEBRAL DISC PROTRUSION
  16. LIDODERM [Concomitant]
     Indication: INTERVERTEBRAL DISC PROTRUSION
     Dosage: UNK
  17. LIDODERM [Concomitant]
     Indication: INTERVERTEBRAL DISC PROTRUSION
  18. MOTRIN [Concomitant]
     Indication: POLYARTHRITIS
     Dosage: UNK

REACTIONS (1)
  - Vomiting [Unknown]
